FAERS Safety Report 11966800 (Version 2)
Quarter: 2017Q1

REPORT INFORMATION
  Report Type: Spontaneous
  Country: US (occurrence: US)
  Receive Date: 20160127
  Receipt Date: 20170329
  Transmission Date: 20170428
  Serious: Yes (Other)
  Sender: FDA-Public Use
  Company Number: US-ELI_LILLY_AND_COMPANY-US201601009724

PATIENT
  Sex: Female
  Weight: 88 kg

DRUGS (2)
  1. CYMBALTA [Suspect]
     Active Substance: DULOXETINE HYDROCHLORIDE
     Indication: PAIN
     Dosage: UNK, UNKNOWN
     Route: 065
  2. CYMBALTA [Suspect]
     Active Substance: DULOXETINE HYDROCHLORIDE
     Indication: DEPRESSION

REACTIONS (17)
  - Dysphoria [Unknown]
  - Hyperhidrosis [Unknown]
  - Confusional state [Unknown]
  - Hypomania [Unknown]
  - Withdrawal syndrome [Unknown]
  - Nausea [Unknown]
  - Anxiety [Unknown]
  - Headache [Unknown]
  - Sensory disturbance [Unknown]
  - Dizziness [Unknown]
  - Affect lability [Unknown]
  - Fatigue [Unknown]
  - Vomiting [Unknown]
  - Sleep disorder [Unknown]
  - Weight increased [Unknown]
  - Vertigo [Unknown]
  - Paraesthesia [Unknown]
